FAERS Safety Report 17546174 (Version 1)
Quarter: 2020Q1

REPORT INFORMATION
  Report Type: Spontaneous
  Country: US (occurrence: US)
  Receive Date: 20200316
  Receipt Date: 20200316
  Transmission Date: 20200409
  Serious: Yes (Other)
  Sender: FDA-Public Use
  Company Number: US-LEXICON PHARMACEUTICALS, INC-20-1606-00213

PATIENT
  Age: 60 Year
  Sex: Female

DRUGS (4)
  1. XERMELO [Suspect]
     Active Substance: TELOTRISTAT ETHYL
     Indication: CARCINOID TUMOUR
     Dates: start: 20190419
  2. SPIRONOLACTONE. [Suspect]
     Active Substance: SPIRONOLACTONE
  3. LASIX [Concomitant]
     Active Substance: FUROSEMIDE
  4. SANDOSTATIN [Concomitant]
     Active Substance: OCTREOTIDE ACETATE

REACTIONS (5)
  - Joint dislocation [Unknown]
  - Chest pain [Unknown]
  - Dyspepsia [Unknown]
  - Diarrhoea [Unknown]
  - Lethargy [Unknown]

NARRATIVE: CASE EVENT DATE: 202002
